FAERS Safety Report 7108023-9 (Version None)
Quarter: 2010Q4

REPORT INFORMATION
  Report Type: 
  Country: None (occurrence: None)
  Receive Date: 20101109
  Receipt Date: 20101029
  Transmission Date: 20110411
  Serious: Yes (Hospitalization, Other)
  Sender: FDA-Public Use
  Company Number: 2009SP036158

PATIENT
  Age: 33 Year
  Sex: Female
  Weight: 74.8435 kg

DRUGS (7)
  1. NUVARING [Suspect]
     Indication: MENSTRUATION IRREGULAR
     Dates: start: 20070101, end: 20070101
  2. NUVARING [Suspect]
     Indication: METRORRHAGIA
     Dates: start: 20070101, end: 20070101
  3. MORPHINE [Suspect]
     Indication: PAIN
     Dates: start: 20071111
  4. IMITREX [Concomitant]
  5. EXCEDRIN (MIGRAINE) [Concomitant]
  6. ATENOLOL [Concomitant]
  7. P-EPHEDRINE [Concomitant]

REACTIONS (2)
  - COLITIS ISCHAEMIC [None]
  - POLYP [None]
